FAERS Safety Report 5139217-X (Version None)
Quarter: 2006Q4

REPORT INFORMATION
  Report Type: 
  Country: None (occurrence: None)
  Receive Date: 20061030
  Receipt Date: 20060714
  Transmission Date: 20070319
  Serious: No
  Sender: FDA-Public Use
  Company Number: US-GLAXOSMITHKLINE-A0612305A

PATIENT
  Age: 52 Year
  Sex: Female
  Weight: 52.3 kg

DRUGS (1)
  1. ADVAIR HFA [Suspect]
     Indication: ASTHMA
     Route: 055
     Dates: start: 20060101, end: 20060101

REACTIONS (3)
  - BRONCHOSPASM [None]
  - COUGH [None]
  - RIB FRACTURE [None]
